FAERS Safety Report 15535355 (Version 1)
Quarter: 2018Q4

REPORT INFORMATION
  Report Type: Spontaneous
  Country: US (occurrence: US)
  Receive Date: 20181020
  Receipt Date: 20181020
  Transmission Date: 20190205
  Serious: No
  Sender: FDA-Public Use
  Company Number: None

PATIENT
  Age: 74 Year
  Sex: Male
  Weight: 72 kg

DRUGS (3)
  1. JARDIANCE [Suspect]
     Active Substance: EMPAGLIFLOZIN
     Indication: TYPE 2 DIABETES MELLITUS
     Dosage: ?          QUANTITY:1 TABLET(S);?
     Route: 048
     Dates: start: 20180910, end: 20181020
  2. 1 A DAY IRON PILL [Concomitant]
  3. 1 A DAY VITAMIN [Concomitant]
     Active Substance: VITAMINS

REACTIONS (6)
  - Blood glucose increased [None]
  - Penis disorder [None]
  - Pruritus [None]
  - Anal pruritus [None]
  - Rash [None]
  - Bedridden [None]

NARRATIVE: CASE EVENT DATE: 20180912
